FAERS Safety Report 9748411 (Version 3)
Quarter: 2014Q1

REPORT INFORMATION
  Report Type: Spontaneous
  Country: AT (occurrence: AT)
  Receive Date: 20131212
  Receipt Date: 20140224
  Transmission Date: 20141002
  Serious: Yes (Other)
  Sender: FDA-Public Use
  Company Number: PHHY2013AT145193

PATIENT
  Sex: Female

DRUGS (1)
  1. RITALIN [Suspect]
     Dosage: UNK UKN, UNK
     Dates: end: 201401

REACTIONS (3)
  - Electroencephalogram abnormal [Not Recovered/Not Resolved]
  - Abnormal behaviour [Unknown]
  - Drug intolerance [Unknown]
